FAERS Safety Report 15926420 (Version 2)
Quarter: 2019Q1

REPORT INFORMATION
  Report Type: Spontaneous
  Country: US (occurrence: US)
  Receive Date: 20190205
  Receipt Date: 20190219
  Transmission Date: 20190417
  Serious: No
  Sender: FDA-Public Use
  Company Number: US-ALLERGAN-1846779US

PATIENT
  Age: 5 Decade
  Sex: Female

DRUGS (3)
  1. UNKNOWN MEDICATION [Concomitant]
     Active Substance: UNSPECIFIED INGREDIENT
     Indication: ANXIETY
     Dosage: UNK
     Route: 065
  2. BOTOX [Suspect]
     Active Substance: ONABOTULINUMTOXINA
     Indication: MIGRAINE
     Dosage: 155-200 UNITS, SINGLE
     Route: 030
  3. UNKNOWN MEDICATION [Concomitant]
     Active Substance: UNSPECIFIED INGREDIENT
     Indication: DEPRESSION
     Dosage: UNK
     Route: 065

REACTIONS (1)
  - Rash [Recovering/Resolving]
